FAERS Safety Report 15830310 (Version 1)
Quarter: 2019Q1

REPORT INFORMATION
  Report Type: Spontaneous
  Country: US (occurrence: US)
  Receive Date: 20190115
  Receipt Date: 20190115
  Transmission Date: 20190417
  Serious: No
  Sender: FDA-Public Use
  Company Number: US-REGENERON PHARMACEUTICALS, INC.-2018-39281

PATIENT

DRUGS (4)
  1. EYLEA [Suspect]
     Active Substance: AFLIBERCEPT
     Indication: RETINAL VEIN OCCLUSION
     Dosage: 1 MG (0.025 ML), EVERY 4 WEEKS
     Route: 031
     Dates: start: 20180420, end: 20180917
  2. VITAMINS NOS [Concomitant]
     Active Substance: VITAMINS
     Indication: PRODUCT USED FOR UNKNOWN INDICATION
  3. EYLEA [Suspect]
     Active Substance: AFLIBERCEPT
     Indication: MACULAR OEDEMA
     Dosage: 1 MG (0.025 ML), EVERY 4 WEEKS, LAST DOSE PRIOR EVENT
     Route: 031
     Dates: start: 20180815, end: 20180815
  4. EYLEA [Suspect]
     Active Substance: AFLIBERCEPT
     Dosage: 1 MG (0.025 ML), EVERY 4 WEEKS, LAST DOSE
     Route: 031
     Dates: start: 20180917, end: 20180917

REACTIONS (2)
  - Eye pain [Unknown]
  - Underdose [Unknown]

NARRATIVE: CASE EVENT DATE: 20180815
